FAERS Safety Report 17041154 (Version 2)
Quarter: 2019Q4

REPORT INFORMATION
  Report Type: Report from Study
  Country: US (occurrence: US)
  Receive Date: 20191118
  Receipt Date: 20191128
  Transmission Date: 20200122
  Serious: Yes (Death)
  Sender: FDA-Public Use
  Company Number: US-ROCHE-2472399

PATIENT
  Age: 3 Year
  Sex: Male

DRUGS (1)
  1. NUTROPIN [Suspect]
     Active Substance: SOMATROPIN
     Indication: HYPOPITUITARISM
     Route: 058

REACTIONS (1)
  - Death [Fatal]

NARRATIVE: CASE EVENT DATE: 20190515
